FAERS Safety Report 5669076-8 (Version None)
Quarter: 2008Q1

REPORT INFORMATION
  Report Type: 
  Country: None (occurrence: None)
  Receive Date: 20080317
  Receipt Date: 20080307
  Transmission Date: 20080703
  Serious: Yes (Hospitalization)
  Sender: FDA-Public Use
  Company Number: SE-AVENTIS-200812208GDDC

PATIENT
  Age: 27 Year
  Sex: Male

DRUGS (3)
  1. OCTOSTIM [Suspect]
     Route: 042
     Dates: start: 20070911, end: 20070911
  2. CELOCURIN [Suspect]
     Route: 042
     Dates: start: 20070911, end: 20070911
  3. MORPHINE [Concomitant]

REACTIONS (1)
  - PULMONARY OEDEMA [None]
